FAERS Safety Report 7286618-X (Version None)
Quarter: 2011Q1

REPORT INFORMATION
  Report Type: 
  Country: None (occurrence: None)
  Receive Date: 20110210
  Receipt Date: 20110208
  Transmission Date: 20110831
  Serious: Yes (Hospitalization)
  Sender: FDA-Public Use
  Company Number: US-ROXANE LABORATORIES, INC.-2011-RO-00158RO

PATIENT
  Age: 48 Year
  Sex: Female
  Weight: 54 kg

DRUGS (6)
  1. NEURONTIN [Suspect]
     Dosage: 1200 MG
     Route: 048
     Dates: start: 20101206
  2. NEURONTIN [Suspect]
     Indication: AFFECTIVE DISORDER
     Dosage: 600 MG
     Route: 048
     Dates: start: 20101206
  3. LITHIUM CARBONATE [Suspect]
     Dates: start: 20100901, end: 20100901
  4. ZYPREXA [Suspect]
     Dosage: 30 MG
     Route: 048
     Dates: start: 20101001
  5. VITAMIN D [Concomitant]
  6. COLACE [Concomitant]

REACTIONS (4)
  - THYROID DISORDER [None]
  - JOINT SWELLING [None]
  - OEDEMA PERIPHERAL [None]
  - PARAESTHESIA [None]
